FAERS Safety Report 14664261 (Version 1)
Quarter: 2018Q1

REPORT INFORMATION
  Report Type: Spontaneous
  Country: AT (occurrence: AT)
  Receive Date: 20180321
  Receipt Date: 20180321
  Transmission Date: 20180509
  Serious: Yes (Death)
  Sender: FDA-Public Use
  Company Number: AT-ACTELION-A-CH2018-169019

PATIENT
  Age: 74 Year
  Sex: Female

DRUGS (5)
  1. ACEMIN [Concomitant]
     Active Substance: LISINOPRIL
  2. FURON [Concomitant]
     Active Substance: FUROSEMIDE
  3. ESCITALOPRAM [Concomitant]
     Active Substance: ESCITALOPRAM OXALATE
  4. JANUVIA [Concomitant]
     Active Substance: SITAGLIPTIN PHOSPHATE
  5. OPSUMIT [Suspect]
     Active Substance: MACITENTAN
     Indication: PULMONARY ARTERIAL HYPERTENSION
     Dosage: 10 MG, OD
     Route: 048
     Dates: start: 201608, end: 201712

REACTIONS (1)
  - Pulmonary arterial hypertension [Fatal]
